FAERS Safety Report 11094444 (Version 1)
Quarter: 2015Q2

REPORT INFORMATION
  Report Type: Spontaneous
  Country: US (occurrence: US)
  Receive Date: 20150506
  Receipt Date: 20150506
  Transmission Date: 20150821
  Serious: No
  Sender: FDA-Public Use
  Company Number: US-PFIZER INC-2015147130

PATIENT
  Age: 65 Year
  Sex: Female
  Weight: 63 kg

DRUGS (4)
  1. BACLOFEN. [Concomitant]
     Active Substance: BACLOFEN
  2. TIZANIDINE (TIZANIDINE) [Concomitant]
     Active Substance: TIZANIDINE
     Indication: MUSCLE SPASMS
     Dosage: 10 MG, 3X/DAY
     Dates: start: 2014
  3. CELEBREX [Concomitant]
     Active Substance: CELECOXIB
     Indication: PAIN
     Dosage: 100 MG, AS NEEDED
  4. LYRICA [Suspect]
     Active Substance: PREGABALIN
     Indication: NEURALGIA
     Dosage: 50 MG, 3X/DAY
     Dates: start: 201204

REACTIONS (5)
  - Chromatopsia [Unknown]
  - Dizziness [Unknown]
  - Somnolence [Unknown]
  - Vision blurred [Unknown]
  - Fatigue [Unknown]
